FAERS Safety Report 11926460 (Version 5)
Quarter: 2016Q2

REPORT INFORMATION
  Report Type: Report from Study
  Country: CN (occurrence: CN)
  Receive Date: 20160119
  Receipt Date: 20160509
  Transmission Date: 20160815
  Serious: Yes (Death, Other)
  Sender: FDA-Public Use
  Company Number: PHHY2016CN004197

PATIENT
  Age: 60 Year
  Sex: Female
  Weight: 80 kg

DRUGS (11)
  1. AMLODIPINE MALEATE [Concomitant]
     Active Substance: AMLODIPINE MALEATE
     Indication: HYPERTENSION
     Dosage: UNK
     Route: 065
     Dates: start: 200706
  2. ISOSORBIDE MONONITRATE. [Concomitant]
     Active Substance: ISOSORBIDE MONONITRATE
     Indication: ELECTROCARDIOGRAM QT PROLONGED
     Dosage: UNK
     Route: 065
     Dates: start: 20150803, end: 20150902
  3. HYDROCHLOORTHIAZIDE [Concomitant]
     Active Substance: HYDROCHLOROTHIAZIDE
     Indication: ELECTROCARDIOGRAM QT PROLONGED
     Route: 065
     Dates: start: 20150803, end: 20150902
  4. DIGOXIN. [Concomitant]
     Active Substance: DIGOXIN
     Indication: ELECTROCARDIOGRAM QT PROLONGED
     Route: 065
     Dates: start: 20150803, end: 20150902
  5. VALSARTAN. [Concomitant]
     Active Substance: VALSARTAN
     Indication: HYPERTENSION
     Dosage: UNK
     Route: 065
     Dates: start: 200706
  6. ROSUVASTATIN CALCIUM. [Concomitant]
     Active Substance: ROSUVASTATIN CALCIUM
     Indication: ELECTROCARDIOGRAM QT PROLONGED
     Route: 065
     Dates: start: 20150803, end: 20150902
  7. IRBESARTAN HYDROCHLOROTHIAZIDE [Concomitant]
     Active Substance: HYDROCHLOROTHIAZIDE\IRBESARTAN
     Indication: ELECTROCARDIOGRAM QT PROLONGED
     Dosage: UNK
     Route: 065
     Dates: start: 20150803, end: 20150902
  8. LETROZOLE. [Suspect]
     Active Substance: LETROZOLE
     Indication: BREAST CANCER
     Dosage: 2.5 MG, UNK
     Route: 048
     Dates: start: 20150706, end: 20150830
  9. RECOMBINANT HUMAN INSULIN [Concomitant]
     Active Substance: INSULIN HUMAN
     Indication: DIABETES MELLITUS
     Dosage: UNK
     Route: 065
     Dates: start: 2009
  10. POTASSIUM MAGNESIUM ASPARTATE [Concomitant]
     Indication: ELECTROCARDIOGRAM QT PROLONGED
     Route: 065
     Dates: start: 20150803, end: 20150902
  11. ACETYLSALICYLIC ACID W/ALUMINIUM/MAGNESIUM [Concomitant]
     Indication: ELECTROCARDIOGRAM QT PROLONGED
     Route: 065
     Dates: start: 20150803, end: 20150902

REACTIONS (12)
  - Blood creatinine increased [Unknown]
  - Renal injury [Unknown]
  - Coma [Unknown]
  - Death [Fatal]
  - Coronary artery disease [Not Recovered/Not Resolved]
  - Left ventricular dysfunction [Unknown]
  - Ventricular tachycardia [Unknown]
  - Blood urea increased [Unknown]
  - Aortic dilatation [Unknown]
  - Blood pressure increased [Unknown]
  - Blood uric acid increased [Unknown]
  - Cardiac function test abnormal [Unknown]

NARRATIVE: CASE EVENT DATE: 20150817
